FAERS Safety Report 25019234 (Version 1)
Quarter: 2025Q1

REPORT INFORMATION
  Report Type: Spontaneous
  Country: US (occurrence: US)
  Receive Date: 20250227
  Receipt Date: 20250227
  Transmission Date: 20250409
  Serious: No
  Sender: COSETTE PHARMACEUTICALS INC
  Company Number: US-COSETTE-CP2025US000191

PATIENT
  Age: 61 Year
  Sex: Male
  Weight: 186 kg

DRUGS (2)
  1. VYLEESI [Suspect]
     Active Substance: BREMELANOTIDE ACETATE
     Indication: Libido decreased
     Route: 058
     Dates: start: 20250215, end: 20250215
  2. QUVIVIQ [Concomitant]
     Active Substance: DARIDOREXANT
     Route: 065

REACTIONS (9)
  - Painful erection [Not Recovered/Not Resolved]
  - Malaise [Recovering/Resolving]
  - Sleep disorder [Recovering/Resolving]
  - Dysuria [Recovering/Resolving]
  - Pain in extremity [Recovering/Resolving]
  - Pain [Recovering/Resolving]
  - Nausea [Recovering/Resolving]
  - Off label use [Unknown]
  - Product prescribing issue [Unknown]

NARRATIVE: CASE EVENT DATE: 20250201
